FAERS Safety Report 6093691-3 (Version None)
Quarter: 2009Q1

REPORT INFORMATION
  Report Type: 
  Country: None (occurrence: None)
  Receive Date: 20090223
  Receipt Date: 20090223
  Transmission Date: 20090719
  Serious: Yes (Life-Threatening)
  Sender: FDA-Public Use
  Company Number: None

PATIENT
  Sex: Male
  Weight: 14.5151 kg

DRUGS (1)
  1. TAMIFLU [Suspect]
     Indication: INFLUENZA
     Dosage: 1 TEASPOON 2 TIMES A DAY PO
     Route: 048
     Dates: start: 20090217, end: 20090222

REACTIONS (5)
  - AGGRESSION [None]
  - ANGER [None]
  - DRUG EFFECT DECREASED [None]
  - SCREAMING [None]
  - SELF INJURIOUS BEHAVIOUR [None]
